FAERS Safety Report 15684837 (Version 2)
Quarter: 2021Q2

REPORT INFORMATION
  Report Type: Spontaneous
  Country: US (occurrence: US)
  Receive Date: 20181204
  Receipt Date: 20210421
  Transmission Date: 20210716
  Serious: Yes (Life-Threatening, Hospitalization, Other)
  Sender: FDA-Public Use
  Company Number: US-JNJFOC-20181201825

PATIENT
  Age: 26 Year
  Sex: Male

DRUGS (1)
  1. IMODIUM [Suspect]
     Active Substance: LOPERAMIDE HYDROCHLORIDE
     Indication: PRODUCT USED FOR UNKNOWN INDICATION
     Route: 048

REACTIONS (12)
  - Drug withdrawal syndrome [Recovering/Resolving]
  - Bundle branch block left [Unknown]
  - Nausea [Unknown]
  - Haematemesis [Unknown]
  - Cardiotoxicity [Unknown]
  - Electrocardiogram PR prolongation [Unknown]
  - Electrocardiogram QT prolonged [Unknown]
  - Drug abuse [Unknown]
  - Bundle branch block [Unknown]
  - Electrocardiogram QRS complex prolonged [Recovering/Resolving]
  - Overdose [Unknown]
  - Vomiting [Unknown]
